FAERS Safety Report 11580363 (Version 1)
Quarter: 2015Q3

REPORT INFORMATION
  Report Type: Spontaneous
  Country: US (occurrence: US)
  Receive Date: 20150916
  Receipt Date: 20150916
  Transmission Date: 20151125
  Serious: No
  Sender: FDA-Public Use
  Company Number: US-ELI_LILLY_AND_COMPANY-US200804004228

PATIENT
  Sex: Female

DRUGS (1)
  1. FORTEO [Suspect]
     Active Substance: TERIPARATIDE
     Dosage: UNK, UNK
     Dates: start: 200702, end: 200803

REACTIONS (13)
  - Blood urine present [Unknown]
  - Haematoma [Unknown]
  - Nausea [Recovered/Resolved]
  - Dyspepsia [Not Recovered/Not Resolved]
  - Arthropod bite [Recovered/Resolved]
  - Infected bite [Recovered/Resolved]
  - Pollakiuria [Recovered/Resolved]
  - Fluid retention [Unknown]
  - Injection site bruising [Recovered/Resolved]
  - Nephrolithiasis [Unknown]
  - Bone density decreased [Unknown]
  - Somnolence [Unknown]
  - Injection site pain [Recovered/Resolved]

NARRATIVE: CASE EVENT DATE: 2007
